FAERS Safety Report 5092974-3 (Version None)
Quarter: 2006Q3

REPORT INFORMATION
  Report Type: 
  Country: None (occurrence: None)
  Receive Date: 20060830
  Receipt Date: 20060807
  Transmission Date: 20061208
  Serious: Yes (Other)
  Sender: FDA-Public Use
  Company Number: US-GLAXOSMITHKLINE-A0615574A

PATIENT
  Age: 77 Year
  Sex: Female

DRUGS (13)
  1. CITRUCEL CHOCOLATE FIBERSHAKE [Suspect]
     Indication: GASTROINTESTINAL DISORDER
     Route: 048
     Dates: start: 20060701, end: 20060804
  2. MAALOX FAST BLOCKER [Concomitant]
  3. NOVOLOG [Concomitant]
  4. NITROGLYCERIN [Concomitant]
     Route: 062
  5. TRICOR [Concomitant]
  6. ATENOLOL [Concomitant]
  7. ASPIRIN [Concomitant]
  8. CRESTOR [Concomitant]
  9. BENICAR [Concomitant]
  10. PREVACID [Concomitant]
  11. IMDUR [Concomitant]
  12. QUININE SULFATE [Concomitant]
  13. STARLIX [Concomitant]

REACTIONS (6)
  - ABDOMINAL DISTENSION [None]
  - COLONIC POLYP [None]
  - DEFAECATION URGENCY [None]
  - DIARRHOEA HAEMORRHAGIC [None]
  - HAEMATOCHEZIA [None]
  - RECTAL HAEMORRHAGE [None]
